FAERS Safety Report 4944270-X (Version None)
Quarter: 2006Q1

REPORT INFORMATION
  Report Type: 
  Country: None (occurrence: None)
  Receive Date: 20060315
  Receipt Date: 20060120
  Transmission Date: 20060701
  Serious: Yes (Hospitalization, Other)
  Sender: FDA-Public Use
  Company Number: US-GLAXOSMITHKLINE-A0590291A

PATIENT
  Age: 48 Year
  Sex: Female

DRUGS (11)
  1. LAMICTAL [Suspect]
     Indication: EPILEPSY
     Route: 048
     Dates: start: 20051216, end: 20060101
  2. DEPAKOTE [Concomitant]
  3. KEPPRA [Concomitant]
  4. NORVASC [Concomitant]
  5. SYNTHROID [Concomitant]
  6. TYLENOL (CAPLET) [Concomitant]
  7. FOSAMAX [Concomitant]
  8. DAYPRO [Concomitant]
  9. BENADRYL [Concomitant]
  10. ZANTAC [Concomitant]
  11. PREDNISONE [Concomitant]

REACTIONS (4)
  - LYMPHADENOPATHY [None]
  - MUCOSAL INFLAMMATION [None]
  - PYREXIA [None]
  - STEVENS-JOHNSON SYNDROME [None]
